FAERS Safety Report 25284477 (Version 1)
Quarter: 2025Q2

REPORT INFORMATION
  Report Type: Spontaneous
  Country: ES (occurrence: ES)
  Receive Date: 20250508
  Receipt Date: 20250508
  Transmission Date: 20250716
  Serious: Yes (Hospitalization)
  Sender: MERCK SHARP & DOHME LLC
  Company Number: None

PATIENT
  Age: 27 Year
  Sex: Female

DRUGS (3)
  1. KEYTRUDA [Suspect]
     Active Substance: PEMBROLIZUMAB
     Indication: Breast cancer
     Dosage: 2MG/KG EVERY 3 WEEKS
     Route: 042
     Dates: start: 20250325, end: 20250405
  2. PACLITAXEL [Suspect]
     Active Substance: PACLITAXEL
     Indication: Breast cancer
     Route: 042
     Dates: start: 20250325
  3. CARBOPLATIN [Suspect]
     Active Substance: CARBOPLATIN
     Indication: Breast cancer
     Route: 042
     Dates: start: 20250325

REACTIONS (1)
  - Campylobacter gastroenteritis [Recovered/Resolved]

NARRATIVE: CASE EVENT DATE: 20250402
